FAERS Safety Report 8375024-2 (Version None)
Quarter: 2012Q2

REPORT INFORMATION
  Report Type: 
  Country: None (occurrence: None)
  Receive Date: 20120521
  Receipt Date: 20120516
  Transmission Date: 20120825
  Serious: Yes (Hospitalization, Other)
  Sender: FDA-Public Use
  Company Number: CA-ABBOTT-12P-028-0927434-00

PATIENT
  Sex: Male
  Weight: 93.07 kg

DRUGS (1)
  1. LUPRON DEPOT [Suspect]
     Indication: PROSTATE CANCER
     Dates: start: 20100216

REACTIONS (5)
  - SCAB [None]
  - INCONTINENCE [None]
  - RADIATION SKIN INJURY [None]
  - URINARY BLADDER HAEMORRHAGE [None]
  - HAEMORRHAGE URINARY TRACT [None]
